FAERS Safety Report 19525929 (Version 1)
Quarter: 2021Q3

REPORT INFORMATION
  Report Type: Spontaneous
  Country: US (occurrence: US)
  Receive Date: 20210713
  Receipt Date: 20210713
  Transmission Date: 20211014
  Serious: Yes (Hospitalization)
  Sender: FDA-Public Use
  Company Number: None

PATIENT
  Age: 90 Year
  Sex: Male
  Weight: 69.21 kg

DRUGS (6)
  1. CALCIUM CARBONATE 600 MG [Concomitant]
  2. ERLEADA [Suspect]
     Active Substance: APALUTAMIDE
     Indication: PROSTATE CANCER
     Route: 048
     Dates: start: 20210522
  3. HYDROXYUREA 500 MG [Concomitant]
     Active Substance: HYDROXYUREA
  4. SIMVASTATIN 20 MG [Concomitant]
     Active Substance: SIMVASTATIN
  5. TAMSULOSIN 0.4 MG [Concomitant]
     Active Substance: TAMSULOSIN
  6. VITAMIN D 25 MCG [Concomitant]

REACTIONS (1)
  - Hospitalisation [None]

NARRATIVE: CASE EVENT DATE: 20210713
